FAERS Safety Report 4393433-3 (Version None)
Quarter: 2004Q3

REPORT INFORMATION
  Report Type: 
  Country: None (occurrence: None)
  Receive Date: 20040701
  Receipt Date: 20040618
  Transmission Date: 20050211
  Serious: Yes (Other)
  Sender: FDA-Public Use
  Company Number: 2004220335GB

PATIENT
  Age: 73 Year
  Sex: Female
  Weight: 81 kg

DRUGS (5)
  1. CELEBREX [Suspect]
     Indication: ARTHRALGIA
     Dosage: 100 MG, BID, ORAL
     Route: 048
     Dates: start: 20040525, end: 20040602
  2. FLUCLOXACILLIN [Concomitant]
  3. TEMAZEPAM [Concomitant]
  4. DIAZEPAM [Concomitant]
  5. CO-PROXAMOL (DEXTROPROPOXYPHENE HYDROCHLORIDE) [Concomitant]

REACTIONS (4)
  - BURNING SENSATION [None]
  - NASOPHARYNGITIS [None]
  - OESOPHAGEAL PAIN [None]
  - PHARYNGOLARYNGEAL PAIN [None]
